FAERS Safety Report 8539768-1 (Version None)
Quarter: 2012Q3

REPORT INFORMATION
  Report Type: 
  Country: None (occurrence: None)
  Receive Date: 20120726
  Receipt Date: 20070226
  Transmission Date: 20120928
  Serious: Yes (Other)
  Sender: FDA-Public Use
  Company Number: CO-PFIZER INC-2012178600

PATIENT
  Age: 68 Year
  Sex: Female

DRUGS (5)
  1. LIPITOR [Suspect]
     Indication: DYSLIPIDAEMIA
     Dosage: 30 MG, 1X/DAY
  2. OMEPRAZOLE [Concomitant]
     Dosage: 30 MG, 1X/DAY
  3. OLMESARTAN MEDOXOMIL [Suspect]
     Indication: ESSENTIAL HYPERTENSION
     Dosage: UNK
  4. ACCURETIC [Suspect]
     Indication: ESSENTIAL HYPERTENSION
     Dosage: UNK
  5. ACCUPRIL [Suspect]
     Indication: HYPERTENSION
     Dosage: UNK

REACTIONS (2)
  - COUGH [None]
  - HYPERTENSIVE EMERGENCY [None]
